FAERS Safety Report 9022370 (Version 2)
Quarter: 2013Q2

REPORT INFORMATION
  Report Type: Spontaneous
  Country: FR (occurrence: FR)
  Receive Date: 20130118
  Receipt Date: 20130628
  Transmission Date: 20140414
  Serious: Yes (Hospitalization)
  Sender: FDA-Public Use
  Company Number: FR-SANOFI-AVENTIS-2013SA003228

PATIENT
  Age: 49 Year
  Sex: Male

DRUGS (12)
  1. TAXOTERE [Suspect]
     Indication: LUNG ADENOCARCINOMA
     Route: 065
     Dates: start: 20121105
  2. LYRICA [Suspect]
     Indication: PRODUCT USED FOR UNKNOWN INDICATION
     Route: 065
     Dates: start: 20121106
  3. SOLUPRED [Concomitant]
  4. PRIMPERAN [Concomitant]
  5. ACUPAN [Concomitant]
  6. CERTICAN [Concomitant]
  7. DICODIN [Concomitant]
  8. PARACETAMOL [Concomitant]
  9. NEBIVOLOL [Concomitant]
  10. VASTEN [Concomitant]
  11. KARDEGIC [Concomitant]
  12. INEXIUM [Concomitant]

REACTIONS (2)
  - Renal tubular disorder [Recovered/Resolved]
  - Renal failure acute [Recovered/Resolved]
